FAERS Safety Report 7222767-X (Version None)
Quarter: 2011Q1

REPORT INFORMATION
  Report Type: 
  Country: None (occurrence: None)
  Receive Date: 20110106
  Receipt Date: 20110106
  Transmission Date: 20110831
  Serious: Yes (Hospitalization)
  Sender: FDA-Public Use
  Company Number: None

PATIENT
  Age: 81 Year
  Sex: 0
  Weight: 68.2 kg

DRUGS (12)
  1. COUMADIN [Suspect]
     Indication: ATRIAL FIBRILLATION
     Dosage: 4MG DIALY PO
  2. M.V.I. [Concomitant]
  3. LEVOTHYROXINE SODIUM [Concomitant]
  4. LASIX [Concomitant]
  5. ALLEGRA [Concomitant]
  6. ALTACE [Concomitant]
  7. NASACORT [Concomitant]
  8. LORAZA [Concomitant]
  9. ASPIRIN [Concomitant]
  10. COREG [Concomitant]
  11. SPIRONOLACTONE [Concomitant]
  12. FINASTERIDE [Concomitant]

REACTIONS (5)
  - COAGULOPATHY [None]
  - DUODENITIS [None]
  - GASTROINTESTINAL HAEMORRHAGE [None]
  - ANAEMIA [None]
  - DRUG INTERACTION [None]
